FAERS Safety Report 25161873 (Version 3)
Quarter: 2025Q2

REPORT INFORMATION
  Report Type: Report from Study
  Country: JP (occurrence: JP)
  Receive Date: 20250404
  Receipt Date: 20250519
  Transmission Date: 20250717
  Serious: Yes (Other)
  Sender: EISAI
  Company Number: JP-Eisai-202416837_LEQ_P_1

PATIENT
  Age: 77 Year
  Sex: Female

DRUGS (5)
  1. LEQEMBI [Suspect]
     Active Substance: LECANEMAB-IRMB
     Indication: Dementia Alzheimer^s type
     Route: 041
  2. CALONAL [Concomitant]
     Active Substance: ACETAMINOPHEN
  3. DEXAMETHASONE SODIUM PHOSPHATE [Concomitant]
     Active Substance: DEXAMETHASONE SODIUM PHOSPHATE
  4. POLARAMINE [Concomitant]
     Active Substance: DEXCHLORPHENIRAMINE MALEATE
  5. GASTER [Concomitant]
     Active Substance: FAMOTIDINE

REACTIONS (1)
  - Cerebellar infarction [Recovering/Resolving]

NARRATIVE: CASE EVENT DATE: 20250327
